FAERS Safety Report 8617181-6 (Version None)
Quarter: 2012Q3

REPORT INFORMATION
  Report Type: 
  Country: None (occurrence: None)
  Receive Date: 20120823
  Receipt Date: 20120816
  Transmission Date: 20120928
  Serious: Yes (Other)
  Sender: FDA-Public Use
  Company Number: PHHY2012GB071182

PATIENT
  Age: 25 Year
  Sex: Male

DRUGS (1)
  1. CIPROFLOXACIN [Suspect]
     Indication: TYPHOID FEVER

REACTIONS (8)
  - DRUG RESISTANCE [None]
  - OSTEOMYELITIS [None]
  - SKIN MASS [None]
  - SKIN INFECTION [None]
  - INFECTED DERMAL CYST [None]
  - ABSCESS [None]
  - WOUND SECRETION [None]
  - GRANULOMA [None]
